FAERS Safety Report 5720529-3 (Version None)
Quarter: 2008Q2

REPORT INFORMATION
  Report Type: 
  Country: None (occurrence: None)
  Receive Date: 20080423
  Receipt Date: 20070713
  Transmission Date: 20081010
  Serious: Yes (Disabling)
  Sender: FDA-Public Use
  Company Number: WAES 0707USA02404

PATIENT
  Age: 7 Year
  Sex: Female
  Weight: 21.7727 kg

DRUGS (2)
  1. SINGULAIR [Suspect]
     Indication: ASTHMA
     Dosage: 5 MG/HS/PO
     Route: 048
     Dates: start: 20070601, end: 20070713
  2. SINGULAIR [Suspect]
     Indication: HYPERSENSITIVITY
     Dosage: 5 MG/HS/PO
     Route: 048
     Dates: start: 20070601, end: 20070713

REACTIONS (3)
  - ABDOMINAL PAIN [None]
  - FATIGUE [None]
  - SOMNOLENCE [None]
